FAERS Safety Report 9817196 (Version 2)
Quarter: 2014Q1

REPORT INFORMATION
  Report Type: Report from Study
  Country: US (occurrence: US)
  Receive Date: 20140114
  Receipt Date: 20140114
  Transmission Date: 20141002
  Serious: Yes (Hospitalization)
  Sender: FDA-Public Use
  Company Number: US-HALOZYME THERAPEUTICS, INC.-2013-US-HYL-00695

PATIENT
  Age: 63 Year
  Sex: Female
  Weight: 60.32 kg

DRUGS (12)
  1. HYLENEX RECOMBINANT [Suspect]
     Indication: ADJUVANT THERAPY
     Dosage: 150 USP U/ML, Q 3 DAYS; LAST DOSE PRIOR TO EVENT 09DEC13
     Route: 058
     Dates: start: 20130416
  2. ALBUTEROL [Concomitant]
     Dosage: UNK
  3. SYMBICORT [Concomitant]
     Indication: ASTHMA
     Dosage: UNK
  4. CYMBALTA [Concomitant]
     Dosage: UNK
  5. HYDROCODONE [Concomitant]
     Dosage: UNK
  6. LEVOTHYROXINE SODIUM [Concomitant]
     Dosage: UNK
  7. AMITIZA [Concomitant]
     Dosage: UNK
  8. SINGULAIR [Concomitant]
     Dosage: UNK
  9. OMEPRAZOLE [Concomitant]
     Dosage: UNK
  10. SIMVASTATIN [Concomitant]
     Dosage: UNK
  11. SPIRIVA [Concomitant]
     Dosage: UNK
  12. HUMALOG [Concomitant]
     Dosage: UNK

REACTIONS (1)
  - Transient ischaemic attack [Recovered/Resolved]
